FAERS Safety Report 9934544 (Version 1)
Quarter: 2014Q1

REPORT INFORMATION
  Report Type: Report from Study
  Country: AU (occurrence: AU)
  Receive Date: 20140228
  Receipt Date: 20140228
  Transmission Date: 20141002
  Serious: Yes (Other)
  Sender: FDA-Public Use
  Company Number: AU-SA-2014SA020582

PATIENT
  Age: 79 Year
  Sex: Male

DRUGS (1)
  1. LANTUS [Suspect]
     Indication: PRODUCT USED FOR UNKNOWN INDICATION
     Dosage: DOSE: 36
     Route: 058
     Dates: start: 20110520

REACTIONS (4)
  - Myocardial infarction [Unknown]
  - Muscle rupture [Unknown]
  - Hernia [Unknown]
  - Blood glucose decreased [Unknown]
